FAERS Safety Report 4548126-6 (Version None)
Quarter: 2004Q4

REPORT INFORMATION
  Report Type: 
  Country: None (occurrence: None)
  Receive Date: 20041227
  Receipt Date: 20040927
  Transmission Date: 20050328
  Serious: No
  Sender: FDA-Public Use
  Company Number: 04P-163-0274926-00

PATIENT
  Age: 49 Year
  Sex: Male
  Weight: 73.4827 kg

DRUGS (4)
  1. HUMIRA [Suspect]
     Indication: RHEUMATOID ARTHRITIS
     Dosage: 40 MG, 1 IN 2 WK, SUBCUTANEOUS
     Route: 058
     Dates: start: 20040801
  2. GABAPENTIN [Concomitant]
  3. PANTOPRAZOLE [Concomitant]
  4. PREDNISONE [Concomitant]

REACTIONS (2)
  - PAIN IN EXTREMITY [None]
  - WEIGHT INCREASED [None]
